FAERS Safety Report 18331506 (Version 2)
Quarter: 2020Q4

REPORT INFORMATION
  Report Type: Spontaneous
  Country: US (occurrence: US)
  Receive Date: 20200930
  Receipt Date: 20201028
  Transmission Date: 20210113
  Serious: Yes (Other)
  Sender: FDA-Public Use
  Company Number: US-ANIPHARMA-2020-US-019494

PATIENT
  Age: 65 Year
  Sex: Female
  Weight: 61.24 kg

DRUGS (1)
  1. ARIMIDEX [Suspect]
     Active Substance: ANASTROZOLE
     Indication: BREAST CANCER
     Dosage: ONE TABLET PER DAY
     Route: 048
     Dates: start: 201408, end: 20190321

REACTIONS (2)
  - White blood cell count decreased [Unknown]
  - Vitreous detachment [Unknown]

NARRATIVE: CASE EVENT DATE: 201903
